FAERS Safety Report 15295135 (Version 2)
Quarter: 2018Q3

REPORT INFORMATION
  Report Type: Spontaneous
  Country: US (occurrence: US)
  Receive Date: 20180820
  Receipt Date: 20180917
  Transmission Date: 20181010
  Serious: No
  Sender: FDA-Public Use
  Company Number: US-PFIZER INC-2018332805

PATIENT
  Age: 78 Year
  Sex: Male

DRUGS (1)
  1. NEURONTIN [Suspect]
     Active Substance: GABAPENTIN
     Indication: NEUROPATHY PERIPHERAL
     Dosage: 100 MG, 3X/DAY (100MG CAPSULE BY MOUTH THREE TIMES A DAY)
     Route: 048
     Dates: start: 201803

REACTIONS (1)
  - Drug ineffective for unapproved indication [Unknown]
